FAERS Safety Report 14744312 (Version 1)
Quarter: 2018Q2

REPORT INFORMATION
  Report Type: Spontaneous
  Country: US (occurrence: US)
  Receive Date: 20180411
  Receipt Date: 20180411
  Transmission Date: 20180711
  Serious: Yes (Life-Threatening, Hospitalization, Other)
  Sender: FDA-Public Use
  Company Number: US-BRISTOL-MYERS SQUIBB COMPANY-BMS-2018-033295

PATIENT
  Sex: Female

DRUGS (1)
  1. OPDIVO [Suspect]
     Active Substance: NIVOLUMAB
     Indication: PRODUCT USED FOR UNKNOWN INDICATION
     Dosage: UNK
     Route: 065

REACTIONS (10)
  - Pain [Unknown]
  - Rash [Unknown]
  - Fatigue [Unknown]
  - Pruritus [Unknown]
  - Diarrhoea [Unknown]
  - Pericardial effusion [Unknown]
  - Haematemesis [Unknown]
  - Thyroid disorder [Unknown]
  - Influenza [Unknown]
  - Swelling [Unknown]
